FAERS Safety Report 4336203-4 (Version None)
Quarter: 2004Q2

REPORT INFORMATION
  Report Type: 
  Country: None (occurrence: None)
  Receive Date: 20040407
  Receipt Date: 20040323
  Transmission Date: 20050107
  Serious: No
  Sender: FDA-Public Use
  Company Number: A01200401281

PATIENT
  Age: 56 Year
  Sex: Male

DRUGS (8)
  1. (FONDAPARINUX) - SOLUTION - 2.5 MG [Suspect]
     Indication: HIP ARTHROPLASTY
     Dosage: 2.5 MG OD
     Route: 058
     Dates: start: 20040311, end: 20040312
  2. (FONDAPARINUX) - SOLUTION - 2.5 MG [Suspect]
     Indication: THROMBOSIS PROPHYLAXIS
     Dosage: 2.5 MG OD
     Route: 058
     Dates: start: 20040311, end: 20040312
  3. DICLOFENAC SODIUM [Concomitant]
  4. DIPIRONA (DIPYRONE) [Concomitant]
  5. NALOXONA (NALOXONE) [Concomitant]
  6. CEFAZALINA (CEFAZOLIN) [Concomitant]
  7. METOCLOPRAMIDE [Concomitant]
  8. UNIPRIL (RAMIPRIL) [Concomitant]

REACTIONS (9)
  - ACTIVATED PARTIAL THROMBOPLASTIN TIME PROLONGED [None]
  - BLOOD CREATINE INCREASED [None]
  - CEREBROVASCULAR ACCIDENT [None]
  - CONFUSIONAL STATE [None]
  - ENCEPHALOPATHY [None]
  - FAT EMBOLISM [None]
  - NERVOUS SYSTEM DISORDER [None]
  - PROTHROMBIN TIME PROLONGED [None]
  - TACHYPNOEA [None]
